FAERS Safety Report 20467308 (Version 1)
Quarter: 2022Q1

REPORT INFORMATION
  Report Type: Spontaneous
  Country: JP (occurrence: JP)
  Receive Date: 20220214
  Receipt Date: 20220214
  Transmission Date: 20220423
  Serious: Yes (Other)
  Sender: FDA-Public Use
  Company Number: JP-STRIDES ARCOLAB LIMITED-2022SP001230

PATIENT
  Age: 47 Year
  Sex: Female

DRUGS (11)
  1. ETOPOSIDE [Suspect]
     Active Substance: ETOPOSIDE
     Indication: Adrenocortical carcinoma
     Dosage: 100 MILLIGRAM/SQ. METER, CYCLICAL (REPEATED EVERY 4 WEEKS) ON DAYS 2-4
     Route: 065
  2. ETOPOSIDE [Suspect]
     Active Substance: ETOPOSIDE
     Indication: Metastatic neoplasm
  3. DOXORUBICIN [Suspect]
     Active Substance: DOXORUBICIN
     Indication: Adrenocortical carcinoma
     Dosage: 40 MILLIGRAM/SQ. METER, CYCLICAL (REPEATED EVERY 4 WEEKS) ON DAY 1
     Route: 065
  4. DOXORUBICIN [Suspect]
     Active Substance: DOXORUBICIN
     Indication: Metastatic neoplasm
  5. CISPLATIN [Suspect]
     Active Substance: CISPLATIN
     Indication: Adrenocortical carcinoma
     Dosage: 40 MILLIGRAM/SQ. METER, CYCLICAL (REPEATED EVERY 4 WEEKS) ON DAYS 3 AND 4)
     Route: 065
  6. CISPLATIN [Suspect]
     Active Substance: CISPLATIN
     Indication: Metastatic neoplasm
  7. MITOTANE [Suspect]
     Active Substance: MITOTANE
     Indication: Adrenocortical carcinoma
     Dosage: 1500 MILLIGRAM PER DAY
     Route: 048
  8. MITOTANE [Suspect]
     Active Substance: MITOTANE
     Indication: Metastatic neoplasm
     Dosage: 3000 MILLIGRAM PER DAY
     Route: 048
  9. MITOTANE [Suspect]
     Active Substance: MITOTANE
     Dosage: 4000 MILLIGRAM PER DAY
     Route: 048
  10. HYDROCORTISONE [Concomitant]
     Active Substance: HYDROCORTISONE
     Indication: Product used for unknown indication
     Dosage: 20 MILLIGRAM
     Route: 065
  11. HYDROCORTISONE [Concomitant]
     Active Substance: HYDROCORTISONE
     Dosage: UNK (DOSE WAS INCREMENTALLY INCREASED)
     Route: 065

REACTIONS (2)
  - Adrenal insufficiency [Recovered/Resolved]
  - Off label use [Unknown]
